FAERS Safety Report 9682439 (Version 1)
Quarter: 2013Q4

REPORT INFORMATION
  Report Type: Spontaneous
  Country: CA (occurrence: CA)
  Receive Date: 20131112
  Receipt Date: 20131112
  Transmission Date: 20140711
  Serious: Yes (Other)
  Sender: FDA-Public Use
  Company Number: CA-ROCHE-1300472

PATIENT
  Age: 84 Year
  Sex: Female

DRUGS (1)
  1. CLONAZEPAM [Suspect]
     Indication: PRODUCT USED FOR UNKNOWN INDICATION
     Dosage: THERAPY DURATION: 6.0 YEARS
     Route: 048

REACTIONS (5)
  - Abdominal pain [Recovered/Resolved]
  - Anxiety [Recovered/Resolved]
  - Chest pain [Recovered/Resolved]
  - Crying [Recovered/Resolved]
  - Dyspnoea [Recovered/Resolved]
